FAERS Safety Report 6393938-X (Version None)
Quarter: 2009Q4

REPORT INFORMATION
  Report Type: 
  Country: None (occurrence: None)
  Receive Date: 20091008
  Receipt Date: 20090925
  Transmission Date: 20100525
  Serious: Yes (Death)
  Sender: FDA-Public Use
  Company Number: GB-PFIZER INC-2009256054

PATIENT
  Age: 47 Year

DRUGS (1)
  1. GENOTROPIN [Suspect]

REACTIONS (1)
  - EMBOLISM [None]
